FAERS Safety Report 4941823-X (Version None)
Quarter: 2006Q1

REPORT INFORMATION
  Report Type: 
  Country: None (occurrence: None)
  Receive Date: 20060307
  Receipt Date: 20060301
  Transmission Date: 20060701
  Serious: Yes (Congenital Anomaly)
  Sender: FDA-Public Use
  Company Number: 006447

PATIENT
  Age: 12 Week

DRUGS (4)
  1. DIDANOSINE [Suspect]
     Indication: HIV INFECTION
     Dosage: 400 MG, QD, ORAL
     Route: 048
  2. NELFINAVIR (NELFINAVIR) [Suspect]
     Indication: HIV INFECTION
     Dosage: 2500 MG, QD, ORAL
     Route: 048
  3. ABACAVIR [Suspect]
     Indication: HIV INFECTION
     Dosage: 600 MG, QD, ORAL
     Route: 048
  4. FOLACE SODIUM (FOLATE SODIUM) [Concomitant]

REACTIONS (3)
  - ABORTION INDUCED [None]
  - DRUG EXPOSURE DURING PREGNANCY [None]
  - TRISOMY 21 [None]
